FAERS Safety Report 7439662-3 (Version None)
Quarter: 2011Q2

REPORT INFORMATION
  Report Type: 
  Country: None (occurrence: None)
  Receive Date: 20110427
  Receipt Date: 20110412
  Transmission Date: 20111010
  Serious: Yes (Other)
  Sender: FDA-Public Use
  Company Number: PHHY2011BE30605

PATIENT
  Age: 75 Year
  Sex: Female

DRUGS (2)
  1. PROLEUKIN [Suspect]
     Indication: METASTASES TO LIVER
     Dosage: TREATMENT DISCONTINUED
  2. PROLEUKIN [Suspect]
     Dosage: RESTARTED AT LOWER DOSE

REACTIONS (4)
  - RENAL FAILURE ACUTE [None]
  - OVARIAN MASS [None]
  - METASTASES TO OVARY [None]
  - NEOPLASM MALIGNANT [None]
